FAERS Safety Report 22811768 (Version 3)
Quarter: 2024Q2

REPORT INFORMATION
  Report Type: Report from Study
  Country: US (occurrence: US)
  Receive Date: 20230810
  Receipt Date: 20240524
  Transmission Date: 20240715
  Serious: No
  Sender: FDA-Public Use
  Company Number: US-ACADIA PHARMACEUTICALS INC.-ACA-2023-PIM-003046

PATIENT
  Age: 86 Year
  Sex: Female

DRUGS (15)
  1. NUPLAZID [Suspect]
     Active Substance: PIMAVANSERIN TARTRATE
     Indication: Parkinson^s disease
     Dosage: 34 MILLIGRAM, QD
     Route: 048
     Dates: start: 202110
  2. NUPLAZID [Suspect]
     Active Substance: PIMAVANSERIN TARTRATE
     Dosage: 34 MILLIGRAM, QD
     Route: 048
     Dates: start: 20221004
  3. NUPLAZID [Suspect]
     Active Substance: PIMAVANSERIN TARTRATE
     Dosage: 34 MILLIGRAM, QD
     Route: 048
     Dates: end: 20240428
  4. NUPLAZID [Suspect]
     Active Substance: PIMAVANSERIN TARTRATE
     Dosage: 34 MILLIGRAM, QD
     Route: 048
     Dates: start: 20240501
  5. SINEMET [Suspect]
     Active Substance: CARBIDOPA\LEVODOPA
  6. TOPIRAMATE [Concomitant]
     Active Substance: TOPIRAMATE
     Dosage: 200 MILLIGRAM
  7. LINZESS [Concomitant]
     Active Substance: LINACLOTIDE
     Dosage: 72 MICROGRAM
  8. CARBIDOPA\LEVODOPA [Concomitant]
     Active Substance: CARBIDOPA\LEVODOPA
     Dosage: 10/100 MG
  9. LORAZEPAM [Concomitant]
     Active Substance: LORAZEPAM
     Dosage: 0.5 MILLIGRAM
  10. MIRTAZAPINE [Concomitant]
     Active Substance: MIRTAZAPINE
     Dosage: 30 MILLIGRAM
  11. DULOXETINE [Concomitant]
     Active Substance: DULOXETINE
     Dosage: 30 MILLIGRAM
  12. DIVALPROEX SODIUM [Concomitant]
     Active Substance: DIVALPROEX SODIUM
     Dosage: 125 MILLIGRAM DR
  13. DEPAKOTE [Concomitant]
     Active Substance: DIVALPROEX SODIUM
     Dosage: 500 MILLIGRAM
  14. OLANZAPINE [Concomitant]
     Active Substance: OLANZAPINE
  15. IBUPROFEN [Concomitant]
     Active Substance: IBUPROFEN

REACTIONS (6)
  - Product dose omission issue [Not Recovered/Not Resolved]
  - Product dose omission issue [Recovered/Resolved]
  - Abnormal dreams [Not Recovered/Not Resolved]
  - Sleep talking [Not Recovered/Not Resolved]
  - Confusional state [Unknown]
  - Hallucination, visual [Unknown]

NARRATIVE: CASE EVENT DATE: 20240221
